APPROVED DRUG PRODUCT: FAMOTIDINE
Active Ingredient: FAMOTIDINE
Strength: 10MG
Dosage Form/Route: TABLET, CHEWABLE;ORAL
Application: A075715 | Product #001
Applicant: L PERRIGO CO
Approved: Aug 22, 2003 | RLD: No | RS: No | Type: DISCN